FAERS Safety Report 5426039-5 (Version None)
Quarter: 2007Q3

REPORT INFORMATION
  Report Type: 
  Country: None (occurrence: None)
  Receive Date: 20070824
  Receipt Date: 20070824
  Transmission Date: 20080115
  Serious: Yes (Death)
  Sender: FDA-Public Use
  Company Number: None

PATIENT
  Age: 53 Year
  Sex: Male
  Weight: 81.6475 kg

DRUGS (2)
  1. CIPRO [Suspect]
  2. FLAGYL [Suspect]

REACTIONS (24)
  - ABDOMINAL INFECTION [None]
  - ABNORMAL BEHAVIOUR [None]
  - ANASTOMOTIC LEAK [None]
  - ANXIETY [None]
  - COMPLETED SUICIDE [None]
  - COMPUTERISED TOMOGRAM ABDOMEN ABNORMAL [None]
  - DECREASED INTEREST [None]
  - DIVERTICULITIS [None]
  - FEAR [None]
  - HAEMATOMA [None]
  - HALLUCINATION, AUDITORY [None]
  - HALLUCINATION, GUSTATORY [None]
  - ILEITIS [None]
  - INFLAMMATION [None]
  - INSOMNIA [None]
  - LOCALISED INTRAABDOMINAL FLUID COLLECTION [None]
  - NERVOUSNESS [None]
  - OBSESSIVE THOUGHTS [None]
  - OEDEMA [None]
  - PARANOIA [None]
  - PERITONITIS [None]
  - SOCIAL AVOIDANT BEHAVIOUR [None]
  - SUICIDAL IDEATION [None]
  - THINKING ABNORMAL [None]
